FAERS Safety Report 4300195-4 (Version None)
Quarter: 2004Q1

REPORT INFORMATION
  Report Type: 
  Country: None (occurrence: None)
  Receive Date: 20040218
  Receipt Date: 20040218
  Transmission Date: 20041129
  Serious: Yes (Hospitalization)
  Sender: FDA-Public Use
  Company Number: None

PATIENT
  Age: 69 Year
  Sex: Female
  Weight: 99.8 kg

DRUGS (12)
  1. TEQUIN [Suspect]
     Indication: CHRONIC OBSTRUCTIVE AIRWAYS DISEASE EXACERBATED
     Dosage: 400 MG IV DAILY X 3 DAYS, 400 MG PO DAILY X 1 DAY
  2. ALBUTEROL/ATROVENT [Concomitant]
  3. NYSTATIN [Concomitant]
  4. ADVAIR DISKUS 100/50 [Concomitant]
  5. IRON SUPPLEMENTS [Concomitant]
  6. DIGOXIN [Concomitant]
  7. KCL TAB [Concomitant]
  8. PRILOSEC [Concomitant]
  9. GLUTROL XL [Concomitant]
  10. ALDACTONE [Concomitant]
  11. MAGNESIUM [Concomitant]
  12. HYDROCORTISONE CREAM [Concomitant]

REACTIONS (4)
  - BLISTER [None]
  - BLOOD GLUCOSE INCREASED [None]
  - ORAL CANDIDIASIS [None]
  - RASH [None]
